FAERS Safety Report 5114219-8 (Version None)
Quarter: 2006Q3

REPORT INFORMATION
  Report Type: 
  Country: None (occurrence: None)
  Receive Date: 20060925
  Receipt Date: 20060921
  Transmission Date: 20061208
  Serious: Yes (Death)
  Sender: FDA-Public Use
  Company Number: US-ROXANE LABORATORIES, INC-2006-DE-05088GD

PATIENT
  Age: 60 Year
  Sex: Male

DRUGS (3)
  1. PREDNISONE TAB [Suspect]
     Indication: IMMUNOSUPPRESSANT DRUG THERAPY
  2. AZATHIOPRINE [Suspect]
     Indication: IMMUNOSUPPRESSANT DRUG THERAPY
  3. TACROLIMUS [Suspect]
     Indication: IMMUNOSUPPRESSANT DRUG THERAPY

REACTIONS (9)
  - ACANTHAMOEBA INFECTION [None]
  - CEREBRAL CYST [None]
  - DERMAL CYST [None]
  - FATIGUE [None]
  - LUNG CYST BENIGN [None]
  - MULTI-ORGAN FAILURE [None]
  - MYOCLONUS [None]
  - NAUSEA [None]
  - SUBCUTANEOUS NODULE [None]
